FAERS Safety Report 19621513 (Version 1)
Quarter: 2021Q3

REPORT INFORMATION
  Report Type: Report from Study
  Country: None (occurrence: US)
  Receive Date: 20210728
  Receipt Date: 20210728
  Transmission Date: 20211014
  Serious: Yes (Hospitalization)
  Sender: FDA-Public Use
  Company Number: US-ABBVIE-21K-163-4009063-00

PATIENT
  Sex: Female

DRUGS (1)
  1. HUMIRA [Suspect]
     Active Substance: ADALIMUMAB
     Indication: JUVENILE IDIOPATHIC ARTHRITIS
     Dosage: CITRATE FREE
     Route: 058

REACTIONS (9)
  - Sensitive skin [Not Recovered/Not Resolved]
  - Eye swelling [Recovered/Resolved]
  - Dry skin [Not Recovered/Not Resolved]
  - Food allergy [Not Recovered/Not Resolved]
  - Illness [Not Recovered/Not Resolved]
  - Lip swelling [Recovered/Resolved]
  - Food allergy [Recovered/Resolved]
  - Dermatitis allergic [Not Recovered/Not Resolved]
  - Adverse food reaction [Not Recovered/Not Resolved]
